FAERS Safety Report 5626891-4 (Version None)
Quarter: 2008Q1

REPORT INFORMATION
  Report Type: 
  Country: None (occurrence: None)
  Receive Date: 20080212
  Receipt Date: 20080201
  Transmission Date: 20080703
  Serious: Yes (Hospitalization, Other)
  Sender: FDA-Public Use
  Company Number: 231191J08USA

PATIENT
  Age: 63 Year
  Sex: Female
  Weight: 101.1521 kg

DRUGS (6)
  1. REBIF [Suspect]
     Indication: MULTIPLE SCLEROSIS
     Dosage: 44 MCG, 3 IN 1 WEEKS, SUBCUTANEOUS
     Route: 058
     Dates: start: 20061122
  2. CYMBALTA [Concomitant]
  3. SYNTHROID [Concomitant]
  4. PRAVACHOL [Concomitant]
  5. IBUPROFEN [Concomitant]
  6. PURPLE PILL (ALL OTHER THERAPEUTIC PRODUCTS) [Concomitant]

REACTIONS (4)
  - ANAEMIA [None]
  - CORONARY ARTERY OCCLUSION [None]
  - EAR PAIN [None]
  - MYOCARDIAL INFARCTION [None]
